FAERS Safety Report 12950050 (Version 1)
Quarter: 2016Q4

REPORT INFORMATION
  Report Type: Spontaneous
  Country: US (occurrence: US)
  Receive Date: 20161117
  Receipt Date: 20161117
  Transmission Date: 20170207
  Serious: No
  Sender: FDA-Public Use
  Company Number: US-BAYER-2016-220354

PATIENT
  Sex: Female

DRUGS (1)
  1. MIRALAX [Suspect]
     Active Substance: POLYETHYLENE GLYCOL 3350
     Indication: CONSTIPATION PROPHYLAXIS
     Dosage: UNK UNK, QD
     Dates: start: 2009, end: 2016

REACTIONS (3)
  - Product use issue [Unknown]
  - Drug ineffective [None]
  - Product use issue [Unknown]

NARRATIVE: CASE EVENT DATE: 2009
